FAERS Safety Report 25669202 (Version 1)
Quarter: 2025Q3

REPORT INFORMATION
  Report Type: Spontaneous
  Country: US (occurrence: US)
  Receive Date: 20250812
  Receipt Date: 20250812
  Transmission Date: 20251020
  Serious: Yes (Hospitalization)
  Sender: ZYDUS PHARM
  Company Number: US-CADILA HEALTHCARE LIMITED-US-ZYDUS-127064

PATIENT

DRUGS (5)
  1. FENTANYL [Suspect]
     Active Substance: FENTANYL
     Indication: Sedation
     Route: 065
  2. ETOMIDATE [Concomitant]
     Active Substance: ETOMIDATE
     Indication: Sedation
     Route: 042
  3. PROPOFOL [Concomitant]
     Active Substance: PROPOFOL
     Indication: Sedation
     Route: 065
  4. SUCCINYLCHOLINE [Concomitant]
     Active Substance: SUCCINYLCHOLINE
     Indication: Sedation
     Route: 042
  5. KETAMINE [Concomitant]
     Active Substance: KETAMINE
     Indication: Sedation
     Route: 065

REACTIONS (1)
  - Chest wall rigidity [Recovering/Resolving]
